FAERS Safety Report 18278408 (Version 1)
Quarter: 2020Q3

REPORT INFORMATION
  Report Type: Spontaneous
  Country: US (occurrence: US)
  Receive Date: 20200917
  Receipt Date: 20200917
  Transmission Date: 20201103
  Serious: Yes (Hospitalization)
  Sender: FDA-Public Use
  Company Number: None

PATIENT
  Age: 21 Year
  Sex: Male

DRUGS (6)
  1. METRONIDAZOL [Concomitant]
     Active Substance: METRONIDAZOLE
     Dates: start: 20191126
  2. CLINDAMYCIN. [Concomitant]
     Active Substance: CLINDAMYCIN
     Dates: start: 20200531
  3. ZYKADIA [Suspect]
     Active Substance: CERITINIB
     Indication: NEOPLASM MALIGNANT
     Route: 048
     Dates: start: 20191219
  4. LEVOFLOXACIN. [Concomitant]
     Active Substance: LEVOFLOXACIN
     Dates: start: 20190412
  5. ONDANSETRON [Concomitant]
     Active Substance: ONDANSETRON
  6. NEULASTA [Concomitant]
     Active Substance: PEGFILGRASTIM
     Dates: start: 20191217

REACTIONS (2)
  - Therapy interrupted [None]
  - Hospitalisation [None]

NARRATIVE: CASE EVENT DATE: 20200720
